FAERS Safety Report 13391436 (Version 1)
Quarter: 2017Q1

REPORT INFORMATION
  Report Type: Spontaneous
  Country: US (occurrence: US)
  Receive Date: 20170331
  Receipt Date: 20170331
  Transmission Date: 20170429
  Serious: No
  Sender: FDA-Public Use
  Company Number: US-MYLANLABS-2016M1005017

PATIENT
  Sex: Male
  Weight: 77.98 kg

DRUGS (2)
  1. HYDROCODONE [Concomitant]
     Active Substance: HYDROCODONE
     Indication: BREAKTHROUGH PAIN
     Dosage: UNK, PRN
  2. FENTANYL. [Suspect]
     Active Substance: FENTANYL
     Indication: PAIN
     Dosage: 12.5 ?G, QH
     Route: 062
     Dates: start: 2015, end: 2015

REACTIONS (1)
  - Drug effect decreased [Recovered/Resolved]

NARRATIVE: CASE EVENT DATE: 2015
